FAERS Safety Report 9009728 (Version 3)
Quarter: 2013Q1

REPORT INFORMATION
  Report Type: Report from Study
  Country: CA (occurrence: CA)
  Receive Date: 20130110
  Receipt Date: 20130329
  Transmission Date: 20140127
  Serious: Yes (Hospitalization, Other)
  Sender: FDA-Public Use
  Company Number: CA-JNJFOC-20130102150

PATIENT
  Age: 58 Year
  Sex: Female
  Weight: 107 kg

DRUGS (5)
  1. REMICADE [Suspect]
     Indication: CROHN^S DISEASE
     Route: 042
     Dates: start: 20070807
  2. REMICADE [Suspect]
     Indication: CROHN^S DISEASE
     Route: 042
     Dates: start: 20050807
  3. SYNTHROID [Concomitant]
     Route: 065
  4. OXYBUTIN [Concomitant]
     Route: 065
  5. ANTICOAGULANT [Concomitant]
     Dosage: FOR 30 DAYS
     Route: 048

REACTIONS (2)
  - Osteoarthritis [Recovered/Resolved]
  - Haemoglobin decreased [Unknown]
